FAERS Safety Report 18750059 (Version 1)
Quarter: 2021Q1

REPORT INFORMATION
  Report Type: Spontaneous
  Country: AR (occurrence: AR)
  Receive Date: 20210118
  Receipt Date: 20210118
  Transmission Date: 20210419
  Serious: Yes (Other)
  Sender: FDA-Public Use
  Company Number: AR-PFIZER INC-2021020256

PATIENT
  Age: 76 Year
  Sex: Female

DRUGS (1)
  1. IBRANCE [Suspect]
     Active Substance: PALBOCICLIB
     Indication: BREAST CANCER METASTATIC
     Dosage: 75 MG, CYCLIC (DAILY, SCHEME 3X1)
     Dates: start: 20181018

REACTIONS (5)
  - Depression [Unknown]
  - Tachycardia [Unknown]
  - Cardiac disorder [Unknown]
  - Bone disorder [Unknown]
  - Malaise [Unknown]

NARRATIVE: CASE EVENT DATE: 202010
